FAERS Safety Report 5919821-9 (Version None)
Quarter: 2008Q4

REPORT INFORMATION
  Report Type: 
  Country: None (occurrence: None)
  Receive Date: 20081010
  Receipt Date: 20080930
  Transmission Date: 20090506
  Serious: Yes (Death)
  Sender: FDA-Public Use
  Company Number: GXKR2008JP08589

PATIENT
  Age: 79 Year
  Sex: Male

DRUGS (7)
  1. ETHAMBUTOL SANDOZ (NGX) (ETHAMBUTOL) [Suspect]
     Indication: TUBERCULOUS PLEURISY
     Dosage: ORAL
     Route: 048
     Dates: start: 20080703, end: 20080808
  2. RIFAMPICIN [Suspect]
     Indication: TUBERCULOUS PLEURISY
     Dosage: ORAL
     Route: 048
     Dates: start: 20080703, end: 20080808
  3. ISCOTIN (ISONIAZID) UNKNOWN [Suspect]
     Indication: TUBERCULOUS PLEURISY
     Dosage: ORAL
     Route: 048
     Dates: start: 20080703, end: 20080808
  4. PYRAZINAMIDE [Suspect]
     Indication: TUBERCULOUS PLEURISY
     Dosage: ORAL
     Route: 048
     Dates: start: 20080703, end: 20080808
  5. PYDOXAL (PYRIDOXAL PHOSPHATE) UNKNOWN [Suspect]
     Indication: PROPHYLAXIS
     Dosage: ORAL
     Route: 048
     Dates: start: 20080708, end: 20080808
  6. PYDOXAL (PYRIDOXAL PHOSPHATE) UNKNOWN [Suspect]
     Indication: TUBERCULOUS PLEURISY
     Dosage: ORAL
     Route: 048
     Dates: start: 20080708, end: 20080808
  7. ACECOL (TEMOCAPRIL HYDROCHLORIDE) [Suspect]
     Indication: HYPERTENSION
     Dosage: ORAL
     Route: 048
     Dates: start: 20080708, end: 20080808

REACTIONS (2)
  - BODY TINEA [None]
  - HEPATITIS FULMINANT [None]
